FAERS Safety Report 21582366 (Version 1)
Quarter: 2022Q4

REPORT INFORMATION
  Report Type: Spontaneous
  Country: BR (occurrence: BR)
  Receive Date: 20221111
  Receipt Date: 20221111
  Transmission Date: 20230113
  Serious: Yes (Other)
  Sender: FDA-Public Use
  Company Number: BR-TAKEDA-2022TUS083269

PATIENT
  Age: 24 Year
  Sex: Male

DRUGS (3)
  1. ENTYVIO [Suspect]
     Active Substance: VEDOLIZUMAB
     Indication: Crohn^s disease
     Dosage: 300 MILLIGRAM
     Route: 065
     Dates: start: 20180621
  2. MESALAMINE [Suspect]
     Active Substance: MESALAMINE
     Indication: Crohn^s disease
     Dosage: 2.4 GRAM
     Route: 065
     Dates: end: 20171016
  3. BUDESONIDE [Concomitant]
     Active Substance: BUDESONIDE
     Dosage: 09 MILLIGRAM, QD
     Dates: start: 20171016

REACTIONS (4)
  - Crohn^s disease [Unknown]
  - Eye infection toxoplasmal [Unknown]
  - Headache [Unknown]
  - Infectious mononucleosis [Unknown]

NARRATIVE: CASE EVENT DATE: 20190429
